FAERS Safety Report 4865624-6 (Version None)
Quarter: 2005Q4

REPORT INFORMATION
  Report Type: 
  Country: None (occurrence: None)
  Receive Date: 20051220
  Receipt Date: 20051207
  Transmission Date: 20060501
  Serious: Yes (Other)
  Sender: FDA-Public Use
  Company Number: 2005166137

PATIENT
  Sex: Male
  Weight: 61.2356 kg

DRUGS (15)
  1. VIAGRA [Suspect]
     Indication: ERECTILE DYSFUNCTION
  2. VIAGRA [Suspect]
     Indication: LIBIDO DECREASED
  3. TESTOSTERONE [Suspect]
     Indication: BLOOD TESTOSTERONE DECREASED
  4. SUSTIVA [Concomitant]
  5. VIREAD [Concomitant]
  6. ALL OTHER THERAPEUTIC PRODUCTS (ALL OTHER THERAPEUTIC PRODUCTS) [Concomitant]
  7. EFFEXOR [Concomitant]
  8. ACIPHEX [Concomitant]
  9. BISACODYL (BISACODYL) [Concomitant]
  10. GABAPENTIN [Concomitant]
  11. LIPITOR [Concomitant]
  12. METHADONE HCL [Concomitant]
  13. OXYCONTIN [Concomitant]
  14. TRAZODONE HCL [Concomitant]
  15. TAMSULOSIN HCL [Concomitant]

REACTIONS (8)
  - ABNORMAL BEHAVIOUR [None]
  - ANORGASMIA [None]
  - ANXIETY [None]
  - ATTENTION DEFICIT/HYPERACTIVITY DISORDER [None]
  - BIPOLAR DISORDER [None]
  - DRUG EFFECT DECREASED [None]
  - LIBIDO DECREASED [None]
  - MOOD ALTERED [None]
